FAERS Safety Report 5906750-X (Version None)
Quarter: 2008Q3

REPORT INFORMATION
  Report Type: 
  Country: None (occurrence: None)
  Receive Date: 20080930
  Receipt Date: 20080916
  Transmission Date: 20090109
  Serious: Yes (Other)
  Sender: FDA-Public Use
  Company Number: 2008AL010756

PATIENT
  Age: 12 Year
  Sex: Female

DRUGS (9)
  1. SERTRALINE HYDROCHLORIDE [Suspect]
     Indication: INTENTIONAL OVERDOSE
     Dosage: 1000 MG; X1; PO
     Route: 048
     Dates: start: 20080309, end: 20080309
  2. RAMIPRIL [Suspect]
     Indication: INTENTIONAL OVERDOSE
     Dosage: 25 MG; X1; PO
     Route: 048
     Dates: start: 20080309, end: 20080309
  3. RANITIDINE [Suspect]
     Indication: INTENTIONAL OVERDOSE
     Dosage: 6000 MG; X1; PO
     Route: 048
     Dates: start: 20080309, end: 20080309
  4. TRIMIPRAMINE MALEATE [Suspect]
     Indication: INTENTIONAL OVERDOSE
     Dosage: 400 MG; X1; PO
     Route: 048
     Dates: start: 20080309, end: 20080309
  5. SIMVASTATIN [Concomitant]
  6. BISOPROLOL [Concomitant]
  7. LEVOTHYROXINE SODIUM [Concomitant]
  8. PANTOPRAZOLE SODIUM [Concomitant]
  9. TORSEMIDE [Concomitant]

REACTIONS (2)
  - FATIGUE [None]
  - MULTIPLE DRUG OVERDOSE INTENTIONAL [None]
